FAERS Safety Report 6251641-0 (Version None)
Quarter: 2009Q2

REPORT INFORMATION
  Report Type: 
  Country: None (occurrence: None)
  Receive Date: 20090630
  Receipt Date: 20090618
  Transmission Date: 20091009
  Serious: Yes (Other)
  Sender: FDA-Public Use
  Company Number: US-PFIZER INC-2008067014

PATIENT
  Sex: Male

DRUGS (1)
  1. VIAGRA [Suspect]
     Indication: ERECTILE DYSFUNCTION
     Dosage: 100 MG, UNK
     Route: 048
     Dates: start: 19980421, end: 20080101

REACTIONS (5)
  - BLINDNESS [None]
  - INSOMNIA [None]
  - OPTIC ISCHAEMIC NEUROPATHY [None]
  - SUDDEN HEARING LOSS [None]
  - VISUAL IMPAIRMENT [None]
